FAERS Safety Report 7830578-7 (Version None)
Quarter: 2011Q4

REPORT INFORMATION
  Report Type: 
  Country: None (occurrence: None)
  Receive Date: 20111021
  Receipt Date: 20111017
  Transmission Date: 20120403
  Serious: Yes (Death, Other)
  Sender: FDA-Public Use
  Company Number: JP-PFIZER INC-2011247280

PATIENT
  Age: 82 Year
  Sex: Male

DRUGS (10)
  1. ACETAMINOPHEN [Concomitant]
     Dosage: 1200 MG/DAY
     Route: 048
     Dates: start: 20110918, end: 20111013
  2. RISUMIC [Concomitant]
     Indication: DIALYSIS
     Dosage: 10MG/DAY THRICE-WEEKLY (AT THE TIME OF DIALYSIS)
     Route: 048
     Dates: start: 20110923, end: 20111013
  3. LEVOTHYROXINE SODIUM [Concomitant]
     Dosage: 25MG/DAY
     Route: 048
     Dates: start: 20110921, end: 20111010
  4. LYRICA [Suspect]
     Indication: DIABETIC NEUROPATHY
     Dosage: UNK
     Route: 048
     Dates: start: 20110918, end: 20111012
  5. OPALMON [Concomitant]
     Dosage: 15 MICROG/DAY
     Route: 048
     Dates: start: 20110918, end: 20111013
  6. METHYCOOL [Concomitant]
     Dosage: 1500 MICROG/DAY
     Route: 048
     Dates: start: 20110918, end: 20111013
  7. TAKEPRON [Concomitant]
     Dosage: 15 MG/DAY
     Route: 048
     Dates: start: 20110918, end: 20111013
  8. MEXITIL [Concomitant]
     Indication: VENTRICULAR EXTRASYSTOLES
     Dosage: 150MG/DAY
     Route: 048
     Dates: start: 20110926, end: 20111004
  9. LEVOTHYROXINE SODIUM [Concomitant]
     Dosage: 50 MG/DAY
     Route: 048
     Dates: start: 20111011, end: 20111013
  10. CARVEDILOL [Concomitant]
     Indication: VENTRICULAR EXTRASYSTOLES
     Dosage: 0.625 MG/DAY
     Route: 048
     Dates: start: 20111006, end: 20111013

REACTIONS (5)
  - RENAL FAILURE ACUTE [None]
  - CARDIAC ARREST [None]
  - RESPIRATORY FAILURE [None]
  - BRADYCARDIA [None]
  - VENTRICULAR EXTRASYSTOLES [None]
